FAERS Safety Report 4898327-2 (Version None)
Quarter: 2006Q1

REPORT INFORMATION
  Report Type: 
  Country: None (occurrence: None)
  Receive Date: 20060127
  Receipt Date: 20060112
  Transmission Date: 20060701
  Serious: Yes (Other)
  Sender: FDA-Public Use
  Company Number: US200601002099

PATIENT
  Age: 45 Year
  Sex: Female

DRUGS (9)
  1. FORTEO [Suspect]
     Indication: OSTEOPENIA
     Dates: start: 20040201
  2. FORTEO [Concomitant]
  3. KLONOPIN [Concomitant]
  4. WELLBUTRIN [Concomitant]
  5. CELEXA [Concomitant]
  6. GEODON [Concomitant]
  7. NEURONTIN [Concomitant]
  8. VISTARIL [Concomitant]
  9. SYNTHROID [Concomitant]

REACTIONS (2)
  - CONDITION AGGRAVATED [None]
  - FEELING OF DESPAIR [None]
